FAERS Safety Report 18448312 (Version 1)
Quarter: 2020Q4

REPORT INFORMATION
  Report Type: Spontaneous
  Country: DE (occurrence: DE)
  Receive Date: 20201031
  Receipt Date: 20201031
  Transmission Date: 20210114
  Serious: Yes (Other)
  Sender: FDA-Public Use
  Company Number: DE-MACLEODS PHARMACEUTICALS US LTD-MAC2020028850

PATIENT

DRUGS (4)
  1. LAMOTRIGINE. [Concomitant]
     Active Substance: LAMOTRIGINE
     Indication: EXTRAPYRAMIDAL DISORDER
     Dosage: 100 MILLIGRAM, QD
     Route: 065
  2. MIRTAZAPINE. [Concomitant]
     Active Substance: MIRTAZAPINE
     Indication: EXTRAPYRAMIDAL DISORDER
     Dosage: 45 MILLIGRAM, QD
     Route: 065
  3. QUETIAPINE 150 MG [Suspect]
     Active Substance: QUETIAPINE
     Indication: EXTRAPYRAMIDAL DISORDER
     Dosage: 150 MILLIGRAM, QD
     Route: 065
  4. LITHIUM CARBONATE. [Concomitant]
     Active Substance: LITHIUM CARBONATE
     Indication: EXTRAPYRAMIDAL DISORDER
     Dosage: 18.3 MMOL/DAY, QD
     Route: 065

REACTIONS (6)
  - Myalgia [Recovering/Resolving]
  - Tachycardia [Unknown]
  - Hyperhidrosis [Unknown]
  - Blood creatine phosphokinase increased [Recovered/Resolved]
  - Urinary incontinence [Unknown]
  - Asthenia [Unknown]
